FAERS Safety Report 8845887 (Version 1)
Quarter: 2012Q4

REPORT INFORMATION
  Report Type: 
  Country: US (occurrence: US)
  Receive Date: 20121017
  Receipt Date: 20121017
  Transmission Date: 20130627
  Serious: No
  Sender: FDA-Public Use
  Company Number: US-009507513-2012SP027069

PATIENT
  Sex: Female

DRUGS (10)
  1. VICTRELIS [Suspect]
     Indication: HEPATITIS C
     Dosage: 800 mg,
     Route: 048
     Dates: start: 20120220, end: 2012
  2. VICTRELIS [Suspect]
     Dosage: 800 mg, q8h
     Route: 048
     Dates: start: 20120320, end: 201208
  3. RIBASPHERE [Suspect]
     Indication: HEPATITIS C
     Dosage: 800 mg, qd
  4. PEGASYS [Suspect]
     Indication: HEPATITIS C
     Dosage: 180 Microgram, UNK
  5. BUSPIRONE HYDROCHLORIDE [Concomitant]
     Indication: PRODUCT USED FOR UNKNOWN INDICATION
  6. RANITIDINE [Concomitant]
     Indication: PRODUCT USED FOR UNKNOWN INDICATION
  7. WELLBUTRIN [Concomitant]
     Indication: PRODUCT USED FOR UNKNOWN INDICATION
  8. IBUPROFEN [Concomitant]
     Dosage: UNK
  9. PROAIR HFA [Concomitant]
     Dosage: UNK
  10. BUPROPION HYDROCHLORIDE [Concomitant]
     Dosage: UNK

REACTIONS (3)
  - Gingival ulceration [Recovering/Resolving]
  - Glossitis [Unknown]
  - Rash generalised [Recovering/Resolving]
